FAERS Safety Report 6928527-9 (Version None)
Quarter: 2010Q3

REPORT INFORMATION
  Report Type: 
  Country: None (occurrence: None)
  Receive Date: 20100817
  Receipt Date: 20100811
  Transmission Date: 20110219
  Serious: Yes (Hospitalization)
  Sender: FDA-Public Use
  Company Number: FR-B.I. PHARMACEUTICALS,INC./RIDGEFIELD-2010-FF-00654FF

PATIENT
  Age: 60 Year
  Sex: Female

DRUGS (2)
  1. PRAMIPEXOLE DIHYDROCHLORIDE [Suspect]
     Indication: RESTLESS LEGS SYNDROME
     Dosage: 0.09 MG
     Route: 048
     Dates: start: 20070101
  2. PRAMIPEXOLE DIHYDROCHLORIDE [Suspect]
     Dosage: 0.18 MG
     Route: 048

REACTIONS (1)
  - FEMORAL NECK FRACTURE [None]
